FAERS Safety Report 6539034-X (Version None)
Quarter: 2010Q1

REPORT INFORMATION
  Report Type: 
  Country: None (occurrence: None)
  Receive Date: 20100115
  Receipt Date: 20100107
  Transmission Date: 20100710
  Serious: Yes (Hospitalization, Disabling)
  Sender: FDA-Public Use
  Company Number: NO-MILLENNIUM PHARMACEUTICALS, INC.-2010-00688

PATIENT

DRUGS (9)
  1. VELCADE [Suspect]
     Indication: MULTIPLE MYELOMA
     Dosage: UNK
     Route: 042
     Dates: start: 20091104, end: 20091204
  2. VALTREX [Concomitant]
     Dosage: 250 MG, UNK
     Route: 048
  3. DUPHALAC [Concomitant]
     Dosage: 20 ML, UNK
     Route: 048
  4. TOILAX [Concomitant]
     Dosage: 10 MG, UNK
     Route: 054
  5. TOILAX [Concomitant]
     Dosage: 2 DF, UNK
     Route: 048
  6. SELO-ZOK [Concomitant]
     Dosage: 50 MG, UNK
     Route: 048
  7. ACETAMINOPHEN [Concomitant]
     Dosage: 500 MG, UNK
     Route: 048
  8. OXYCONTIN [Concomitant]
     Dosage: 5 MG, UNK
     Route: 048
  9. OXYNORM [Concomitant]
     Route: 048

REACTIONS (4)
  - ABDOMINAL PAIN LOWER [None]
  - BONE MARROW FAILURE [None]
  - DIARRHOEA [None]
  - PERIPHERAL SENSORIMOTOR NEUROPATHY [None]
